FAERS Safety Report 22033492 (Version 1)
Quarter: 2023Q1

REPORT INFORMATION
  Report Type: Spontaneous
  Country: US (occurrence: US)
  Receive Date: 20230224
  Receipt Date: 20230224
  Transmission Date: 20230418
  Serious: No
  Sender: FDA-Public Use
  Company Number: US-PFIZER INC-PV202300033711

PATIENT
  Age: 60 Year
  Sex: Female

DRUGS (2)
  1. XELJANZ [Interacting]
     Active Substance: TOFACITINIB CITRATE
     Dosage: UNK
  2. TACROLIMUS [Interacting]
     Active Substance: TACROLIMUS
     Dosage: UNK

REACTIONS (5)
  - Labelled drug-drug interaction issue [Unknown]
  - Illness [Unknown]
  - Respiratory tract congestion [Unknown]
  - Headache [Unknown]
  - Pyrexia [Unknown]
